FAERS Safety Report 25050460 (Version 5)
Quarter: 2025Q2

REPORT INFORMATION
  Report Type: Spontaneous
  Country: US (occurrence: US)
  Receive Date: 20250307
  Receipt Date: 20250626
  Transmission Date: 20250717
  Serious: No
  Sender: DAIICHI
  Company Number: US-DAIICHI SANKYO, INC.-DS-2025-129159-USAA

PATIENT
  Sex: Female

DRUGS (1)
  1. TURALIO [Suspect]
     Active Substance: PEXIDARTINIB HYDROCHLORIDE
     Indication: Giant cell tumour of tendon sheath
     Dosage: 125 MG, BID (1 CAPSULE BY MOUTH TWICE DAILY (AM+PM)
     Route: 048
     Dates: start: 20250226

REACTIONS (11)
  - Dry eye [Unknown]
  - Pain in extremity [Unknown]
  - Diet noncompliance [Unknown]
  - Mood swings [Not Recovered/Not Resolved]
  - Affective disorder [Not Recovered/Not Resolved]
  - Headache [Unknown]
  - Pruritus [Unknown]
  - Hair colour changes [Not Recovered/Not Resolved]
  - Skin discolouration [Not Recovered/Not Resolved]
  - Asthenia [Not Recovered/Not Resolved]
  - Skin hypopigmentation [Not Recovered/Not Resolved]
